FAERS Safety Report 8130101-6 (Version None)
Quarter: 2011Q4

REPORT INFORMATION
  Report Type: 
  Country: None (occurrence: None)
  Receive Date: 20111227
  Receipt Date: 20110919
  Transmission Date: 20120403
  Serious: No
  Sender: FDA-Public Use
  Company Number: PHEH2011US03326

PATIENT
  Age: 63 Year
  Sex: Female

DRUGS (9)
  1. OXYBUTYNIN (OXYBUTYNIN) ONGOING [Concomitant]
  2. BACLOFEN (BACLOFEN) ONGOING [Concomitant]
  3. TOPAMAX (TOPIRAMATE) ONGOING [Concomitant]
  4. RECLAST (ZOLEDRONIC ACID) ONGOING [Concomitant]
  5. CLONAZEPAM (CLONAZEPAM) ONGOING [Concomitant]
  6. GILENYA [Suspect]
     Dosage: 0.5 MG, QD, ORAL
     Route: 048
  7. GABAPENTIN (GABAPENTIN) ONGOING [Concomitant]
  8. ASA (ACETYLSALICYLIC ACID) ONGOING [Concomitant]
  9. DONEPEZIL (DONEPEZIL) ONGOING [Concomitant]

REACTIONS (5)
  - DIZZINESS [None]
  - ASTHENIA [None]
  - HEADACHE [None]
  - PALLOR [None]
  - NAUSEA [None]
